FAERS Safety Report 8050109-9 (Version None)
Quarter: 2012Q1

REPORT INFORMATION
  Report Type: 
  Country: None (occurrence: None)
  Receive Date: 20120117
  Receipt Date: 20120104
  Transmission Date: 20120608
  Serious: Yes (Death)
  Sender: FDA-Public Use
  Company Number: US-MERCK-1201USA00310

PATIENT
  Age: 74 Year
  Sex: Female

DRUGS (9)
  1. PRINIVIL [Suspect]
     Route: 048
  2. BUMETANIDE [Suspect]
     Route: 048
  3. RISPERIDONE [Suspect]
     Route: 048
  4. ZOCOR [Suspect]
     Route: 048
  5. CLOPIDOGREL [Suspect]
     Route: 048
  6. CARVEDILOL [Suspect]
     Route: 048
  7. TEMAZEPAM [Suspect]
     Route: 048
  8. LEVOTHYROXINE SODIUM [Suspect]
     Route: 048
  9. POTASSIUM CHLORIDE [Suspect]
     Route: 048

REACTIONS (2)
  - TOXICITY TO VARIOUS AGENTS [None]
  - COMPLETED SUICIDE [None]
